FAERS Safety Report 15116864 (Version 1)
Quarter: 2018Q3

REPORT INFORMATION
  Report Type: Spontaneous
  Country: FR (occurrence: FR)
  Receive Date: 20180706
  Receipt Date: 20180706
  Transmission Date: 20181010
  Serious: Yes (Other)
  Sender: FDA-Public Use
  Company Number: FR-VIIV HEALTHCARE LIMITED-FR2018116203

PATIENT
  Age: 62 Year
  Sex: Male

DRUGS (5)
  1. KIVEXA [Suspect]
     Active Substance: ABACAVIR SULFATE\LAMIVUDINE
     Indication: HIV INFECTION
     Dosage: 1 DF, QD
     Route: 048
     Dates: start: 20070319, end: 20170523
  2. INTELENCE [Suspect]
     Active Substance: ETRAVIRINE
     Indication: HIV INFECTION
     Dosage: 2 DF, QD
     Route: 048
     Dates: start: 20120702, end: 20170523
  3. VIRAMUNE [Suspect]
     Active Substance: NEVIRAPINE
     Indication: HIV INFECTION
     Dosage: UNK
     Route: 048
  4. REYATAZ [Suspect]
     Active Substance: ATAZANAVIR SULFATE
     Indication: HIV INFECTION
     Dosage: UNK
     Route: 048
     Dates: start: 20070319, end: 20170523
  5. NORVIR [Suspect]
     Active Substance: RITONAVIR
     Indication: HIV INFECTION
     Dosage: UNK
     Route: 048

REACTIONS (2)
  - Hepatic steatosis [Not Recovered/Not Resolved]
  - Hepatic cirrhosis [Not Recovered/Not Resolved]
